FAERS Safety Report 11972999 (Version 7)
Quarter: 2017Q2

REPORT INFORMATION
  Report Type: Report from Study
  Country: US (occurrence: US)
  Receive Date: 20160128
  Receipt Date: 20170522
  Transmission Date: 20170829
  Serious: Yes (Congenital Anomaly)
  Sender: FDA-Public Use
  Company Number: US-TEVA-597724USA

PATIENT
  Age: 0 Year
  Sex: Female

DRUGS (6)
  1. NUVIGIL [Suspect]
     Active Substance: ARMODAFINIL
     Indication: NARCOLEPSY
     Dosage: 250 MILLIGRAM DAILY;
     Route: 064
     Dates: start: 20091125
  2. NUVIGIL [Suspect]
     Active Substance: ARMODAFINIL
     Indication: HYPERSOMNIA
  3. LAMICTAL [Concomitant]
     Active Substance: LAMOTRIGINE
     Indication: HYPERSOMNIA
     Dosage: 400 MILLIGRAM DAILY;
     Dates: start: 20090218
  4. PRENATAL VITAMINS [Concomitant]
     Active Substance: VITAMINS
     Indication: PREGNANCY
     Dates: start: 20150508
  5. LEXAPRO [Concomitant]
     Active Substance: ESCITALOPRAM OXALATE
     Indication: DEPRESSION
     Dosage: 20 MILLIGRAM DAILY;
     Dates: start: 20090218
  6. IRON [Concomitant]
     Active Substance: IRON
     Indication: ANAEMIA
     Dosage: 325 MILLIGRAM DAILY;
     Dates: start: 20160303

REACTIONS (3)
  - Placental disorder [Recovered/Resolved]
  - Congenital choroid plexus cyst [Recovered/Resolved]
  - Foetal exposure during pregnancy [Unknown]

NARRATIVE: CASE EVENT DATE: 20151211
